FAERS Safety Report 8220675-9 (Version None)
Quarter: 2012Q1

REPORT INFORMATION
  Report Type: 
  Country: None (occurrence: None)
  Receive Date: 20120316
  Receipt Date: 20120302
  Transmission Date: 20120608
  Serious: Yes (Death, Other)
  Sender: FDA-Public Use
  Company Number: KAD201203-000175

PATIENT
  Age: 79 Year
  Sex: Female

DRUGS (2)
  1. ANASTROZOLE [Suspect]
     Indication: BREAST CANCER
  2. TRIAMTERENE (TRIAMTERENE) [Suspect]
     Indication: BREAST CANCER

REACTIONS (2)
  - TRANSIENT ACANTHOLYTIC DERMATOSIS [None]
  - DRUG INTERACTION [None]
